FAERS Safety Report 4760113-1 (Version None)
Quarter: 2005Q3

REPORT INFORMATION
  Report Type: 
  Country: None (occurrence: None)
  Receive Date: 20050902
  Receipt Date: 20050531
  Transmission Date: 20060218
  Serious: No
  Sender: FDA-Public Use
  Company Number: US-GLAXOSMITHKLINE-A0560572A

PATIENT
  Age: 72 Year
  Sex: Male

DRUGS (4)
  1. REQUIP [Suspect]
     Indication: PARKINSON'S DISEASE
     Dosage: .25MG PER DAY
     Route: 048
     Dates: start: 20050528, end: 20050528
  2. STALEVO 100 [Concomitant]
  3. AMANTADINE [Concomitant]
  4. ATENOLOL [Concomitant]

REACTIONS (1)
  - DRUG ADMINISTRATION ERROR [None]
